FAERS Safety Report 25229705 (Version 1)
Quarter: 2025Q2

REPORT INFORMATION
  Report Type: Spontaneous
  Country: DE (occurrence: DE)
  Receive Date: 20250423
  Receipt Date: 20250423
  Transmission Date: 20250717
  Serious: Yes (Other)
  Sender: MYLAN
  Company Number: DE-MYLANLABS-2025M1034811

PATIENT
  Age: 10 Year
  Sex: Female

DRUGS (5)
  1. ACETAMINOPHEN [Suspect]
     Active Substance: ACETAMINOPHEN
     Indication: Migraine
  2. IBUPROFEN [Suspect]
     Active Substance: IBUPROFEN
     Indication: Migraine
  3. ASPIRIN [Suspect]
     Active Substance: ASPIRIN
     Indication: Migraine
  4. SUMATRIPTAN [Suspect]
     Active Substance: SUMATRIPTAN
     Indication: Migraine
  5. DUPILUMAB [Concomitant]
     Active Substance: DUPILUMAB
     Indication: NSAID exacerbated respiratory disease

REACTIONS (2)
  - Dyspnoea [Unknown]
  - Drug tolerance [Unknown]
